FAERS Safety Report 9995560 (Version 2)
Quarter: 2014Q2

REPORT INFORMATION
  Report Type: Spontaneous
  Country: JP (occurrence: JP)
  Receive Date: 20140311
  Receipt Date: 20140516
  Transmission Date: 20141212
  Serious: Yes (Other)
  Sender: FDA-Public Use
  Company Number: JP-PFIZER INC-2014063488

PATIENT
  Age: 98 Year
  Sex: Female
  Weight: 57 kg

DRUGS (6)
  1. UNASYN-S [Suspect]
     Indication: PNEUMONIA
     Dosage: 1.5 G, 2X/DAY
     Route: 041
     Dates: start: 20140215, end: 20140218
  2. UNASYN-S [Suspect]
     Dosage: 1.5 G, 1X/DAY
     Route: 041
     Dates: start: 20140219, end: 20140228
  3. ATELEC [Concomitant]
     Dosage: UNK
     Route: 048
  4. MICARDIS [Concomitant]
     Dosage: UNK
     Route: 048
  5. TAKEPRON OD [Concomitant]
     Dosage: UNK
     Route: 048
  6. SEPAMIT-R [Concomitant]
     Dosage: AT THE TIME OF BLOOD PRESSURE INCREASED

REACTIONS (1)
  - Renal failure acute [Recovered/Resolved]
